FAERS Safety Report 13179573 (Version 2)
Quarter: 2017Q1

REPORT INFORMATION
  Report Type: Report from Study
  Country: DE (occurrence: DE)
  Receive Date: 20170202
  Receipt Date: 20170208
  Transmission Date: 20170428
  Serious: Yes (Hospitalization, Other)
  Sender: FDA-Public Use
  Company Number: DE-BRISTOL-MYERS SQUIBB COMPANY-BMS-2017-007125

PATIENT
  Age: 82 Year
  Sex: Female

DRUGS (1)
  1. APIXABAN [Suspect]
     Active Substance: APIXABAN
     Indication: CEREBROVASCULAR ACCIDENT PROPHYLAXIS
     Dosage: 5 MG, BID
     Route: 048

REACTIONS (7)
  - Off label use [Unknown]
  - Syncope [Recovered/Resolved]
  - Haematoma [Unknown]
  - Stent placement [Recovered/Resolved]
  - Percutaneous coronary intervention [Recovered/Resolved]
  - Fall [Recovered/Resolved]
  - Skin abrasion [Unknown]

NARRATIVE: CASE EVENT DATE: 20160819
